FAERS Safety Report 7215047-X (Version None)
Quarter: 2011Q1

REPORT INFORMATION
  Report Type: 
  Country: None (occurrence: None)
  Receive Date: 20110107
  Receipt Date: 20100921
  Transmission Date: 20110831
  Serious: No
  Sender: FDA-Public Use
  Company Number: A0872118A

PATIENT
  Age: 49 Year
  Sex: Male

DRUGS (3)
  1. UNKNOWN DRUG [Concomitant]
  2. SIMVASTATIN [Concomitant]
  3. LOVAZA [Suspect]
     Dosage: 2CAP TWICE PER DAY
     Route: 048
     Dates: start: 20100101

REACTIONS (2)
  - MEDICATION RESIDUE [None]
  - PRODUCT QUALITY ISSUE [None]
